FAERS Safety Report 12654079 (Version 1)
Quarter: 2016Q3

REPORT INFORMATION
  Report Type: Spontaneous
  Country: US (occurrence: US)
  Receive Date: 20160816
  Receipt Date: 20160816
  Transmission Date: 20161109
  Serious: No
  Sender: FDA-Public Use
  Company Number: US-BEH-2016072239

PATIENT
  Sex: Female
  Weight: 74.83 kg

DRUGS (29)
  1. LIDOCAINE/PRILOCAINE [Concomitant]
     Active Substance: LIDOCAINE\PRILOCAINE
  2. CALTRATE                           /00944201/ [Concomitant]
  3. ATENOLOL. [Concomitant]
     Active Substance: ATENOLOL
  4. SAVELLA [Concomitant]
     Active Substance: MILNACIPRAN HYDROCHLORIDE
  5. VITAMIN D                          /00107901/ [Concomitant]
     Active Substance: ERGOCALCIFEROL
  6. PROMETHAZINE [Concomitant]
     Active Substance: PROMETHAZINE\PROMETHAZINE HYDROCHLORIDE
  7. ALLEGRA [Concomitant]
     Active Substance: FEXOFENADINE HYDROCHLORIDE
  8. MOTRIN [Concomitant]
     Active Substance: IBUPROFEN
  9. CARAFATE [Concomitant]
     Active Substance: SUCRALFATE
  10. ENALAPRIL [Concomitant]
     Active Substance: ENALAPRIL
  11. VERAMYST [Concomitant]
     Active Substance: FLUTICASONE FUROATE
  12. LEVOTHYROXINE. [Concomitant]
     Active Substance: LEVOTHYROXINE
  13. BORIC ACID [Concomitant]
     Active Substance: BORIC ACID
  14. PROBIOTIC                          /06395501/ [Concomitant]
     Active Substance: BIFIDOBACTERIUM ANIMALIS SUBSP. LACTIS
  15. ZINC OXIDE. [Concomitant]
     Active Substance: ZINC OXIDE
  16. AZITHROMYCIN ANHYDROUS. [Concomitant]
     Active Substance: AZITHROMYCIN ANHYDROUS
  17. EPIPEN [Concomitant]
     Active Substance: EPINEPHRINE
  18. CLOTRIMAZOLE AND BETAMETHASONE [Concomitant]
     Active Substance: BETAMETHASONE\CLOTRIMAZOLE
  19. BENTYL [Concomitant]
     Active Substance: DICYCLOMINE HYDROCHLORIDE
  20. NEXIUM [Concomitant]
     Active Substance: ESOMEPRAZOLE MAGNESIUM
  21. PRIMIDONE. [Concomitant]
     Active Substance: PRIMIDONE
  22. NYSTATIN. [Concomitant]
     Active Substance: NYSTATIN
  23. KARIVA [Concomitant]
     Active Substance: DESOGESTREL\ETHINYL ESTRADIOL
  24. ONE A DAY WOMEN^S [Concomitant]
     Active Substance: MINERALS\VITAMINS
  25. ACETAMINOPHEN. [Concomitant]
     Active Substance: ACETAMINOPHEN
  26. HIZENTRA [Suspect]
     Active Substance: HUMAN IMMUNOGLOBULIN G
     Indication: HYPOGAMMAGLOBULINAEMIA
     Dosage: 8 G, QW
     Route: 058
     Dates: start: 20140114
  27. XIFAXAN [Concomitant]
     Active Substance: RIFAXIMIN
  28. DIPHENHYDRAMINE. [Concomitant]
     Active Substance: DIPHENHYDRAMINE
  29. DONNATAL [Concomitant]
     Active Substance: ATROPINE SULFATE\HYOSCYAMINE SULFATE\PHENOBARBITAL\SCOPOLAMINE HYDROBROMIDE

REACTIONS (2)
  - Anal fissure [Unknown]
  - Haemorrhoids [Unknown]
